FAERS Safety Report 24824295 (Version 1)
Quarter: 2025Q1

REPORT INFORMATION
  Report Type: Spontaneous
  Country: US (occurrence: None)
  Receive Date: 20250109
  Receipt Date: 20250109
  Transmission Date: 20250409
  Serious: Yes (Other)
  Sender: ALLEGIS PHARMACEUTICALS
  Company Number: US-Allegis Pharmaceuticals, LLC-APL202501-000002

PATIENT
  Age: 47 Year
  Sex: Female

DRUGS (3)
  1. AZATHIOPRINE [Suspect]
     Active Substance: AZATHIOPRINE
     Indication: Colitis ulcerative
  2. INFLIXIMAB [Suspect]
     Active Substance: INFLIXIMAB
     Indication: Colitis ulcerative
  3. INFLIXIMAB [Suspect]
     Active Substance: INFLIXIMAB

REACTIONS (3)
  - Lymphoproliferative disorder [Unknown]
  - Pneumonitis [Unknown]
  - Product use in unapproved indication [Unknown]
